FAERS Safety Report 25551249 (Version 1)
Quarter: 2025Q3

REPORT INFORMATION
  Report Type: Spontaneous
  Country: US (occurrence: US)
  Receive Date: 20250714
  Receipt Date: 20250714
  Transmission Date: 20251021
  Serious: Yes (Other)
  Sender: TAKEDA
  Company Number: US-TAKEDA-2025TUS062182

PATIENT
  Sex: Female
  Weight: 68 kg

DRUGS (22)
  1. PENTASA [Suspect]
     Active Substance: MESALAMINE
     Indication: Colitis ulcerative
     Dosage: 2 GRAM, QD
     Dates: start: 202101
  2. PENTASA [Suspect]
     Active Substance: MESALAMINE
     Dosage: 4 GRAM, QD
  3. GLUCOSAMINE [Concomitant]
     Active Substance: GLUCOSAMINE
  4. ZINC [Concomitant]
     Active Substance: ZINC
  5. SAFFRON [Concomitant]
     Active Substance: SAFFRON
  6. ALLEGRA [Concomitant]
     Active Substance: FEXOFENADINE HYDROCHLORIDE
  7. PREDNISONE [Concomitant]
     Active Substance: PREDNISONE
     Indication: Colitis ulcerative
  8. PEPPERMINT [Concomitant]
     Active Substance: PEPPERMINT
  9. DIMETHYL SULFONE [Concomitant]
     Active Substance: DIMETHYL SULFONE
  10. UNSPECIFIED INGREDIENT [Concomitant]
     Active Substance: UNSPECIFIED INGREDIENT
  11. CHROMIUM [Concomitant]
     Active Substance: CHROMIC CHLORIDE\CHROMIUM
     Dosage: UNK, QOD
  12. COPPER [Concomitant]
     Active Substance: COPPER
     Dosage: UNK, QOD
  13. FOLATE SODIUM [Concomitant]
     Active Substance: FOLATE SODIUM
  14. BIOTIN [Concomitant]
     Active Substance: BIOTIN
  15. IRON [Concomitant]
     Active Substance: IRON
  16. VITAMIN D3 [Concomitant]
     Active Substance: CHOLECALCIFEROL
     Indication: Vitamin D deficiency
  17. MENAQUINONE 6 [Concomitant]
     Active Substance: MENAQUINONE 6
     Indication: Vitamin D deficiency
  18. OMEGA 3 [Concomitant]
     Active Substance: CAPSAICIN
  19. MAGNESIUM [Concomitant]
     Active Substance: MAGNESIUM
  20. MELATONIN [Concomitant]
     Active Substance: MELATONIN
  21. CALCIUM [Concomitant]
     Active Substance: CALCIUM
     Indication: Bone loss
  22. CREATINE [Concomitant]
     Active Substance: CREATINE
     Dosage: 5 GRAM, QD

REACTIONS (3)
  - Colitis ulcerative [Unknown]
  - Drug ineffective [Unknown]
  - Vitamin D deficiency [Unknown]
